FAERS Safety Report 7946749-5 (Version None)
Quarter: 2011Q4

REPORT INFORMATION
  Report Type: 
  Country: None (occurrence: None)
  Receive Date: 20111129
  Receipt Date: 20111124
  Transmission Date: 20120403
  Serious: Yes (Death, Hospitalization, Other)
  Sender: FDA-Public Use
  Company Number: BR-ABBOTT-10P-020-0688261-00

PATIENT
  Sex: Female
  Weight: 58 kg

DRUGS (2)
  1. HUMIRA [Suspect]
     Indication: RHEUMATOID ARTHRITIS
     Route: 058
     Dates: start: 20080601
  2. ENALAPRIL MALEATE [Concomitant]
     Indication: HYPERTENSION
     Route: 048

REACTIONS (17)
  - FALL [None]
  - CHEST PAIN [None]
  - ARRHYTHMIA [None]
  - CARDIAC ARREST [None]
  - VENOUS OCCLUSION [None]
  - HYPOTENSION [None]
  - RHEUMATOID ARTHRITIS [None]
  - DIZZINESS [None]
  - MITRAL VALVE DISEASE [None]
  - GAIT DISTURBANCE [None]
  - FEELING ABNORMAL [None]
  - THROMBOSIS [None]
  - DYSPNOEA [None]
  - PERIPHERAL EMBOLISM [None]
  - WEIGHT DECREASED [None]
  - FATIGUE [None]
  - SKIN DISCOLOURATION [None]
